FAERS Safety Report 11104883 (Version 2)
Quarter: 2015Q2

REPORT INFORMATION
  Report Type: Spontaneous
  Country: US (occurrence: US)
  Receive Date: 20150511
  Receipt Date: 20150622
  Transmission Date: 20150821
  Serious: Yes (Death, Life-Threatening, Hospitalization, Disabling, Other)
  Sender: FDA-Public Use
  Company Number: PHEH2015US009010

PATIENT
  Age: 76 Year
  Sex: Female
  Weight: 60.5 kg

DRUGS (8)
  1. AFINITOR [Suspect]
     Active Substance: EVEROLIMUS
     Indication: BREAST CANCER METASTATIC
     Dosage: 10 MG, DAILY
     Route: 048
     Dates: start: 201411, end: 201412
  2. FEMARA [Suspect]
     Active Substance: LETROZOLE
     Indication: BREAST CANCER METASTATIC
     Route: 065
     Dates: start: 201411, end: 201504
  3. PROTONIX [Concomitant]
     Active Substance: PANTOPRAZOLE SODIUM
     Indication: PRODUCT USED FOR UNKNOWN INDICATION
     Dosage: 40 MG, QD
     Route: 065
  4. LEVOTHYROXINE [Concomitant]
     Active Substance: LEVOTHYROXINE
     Indication: PRODUCT USED FOR UNKNOWN INDICATION
     Dosage: 25 MG, DAILY
     Route: 065
  5. AFINITOR [Suspect]
     Active Substance: EVEROLIMUS
     Dosage: 5 MG, DAILY
     Route: 048
     Dates: start: 20141217, end: 201504
  6. CALCIUM + VIT D [Concomitant]
     Active Substance: CALCIUM\VITAMIN D
     Indication: PRODUCT USED FOR UNKNOWN INDICATION
     Dosage: 1250/200 MG
     Route: 065
  7. MULTI VITAMIN [Concomitant]
     Active Substance: VITAMINS
     Indication: PRODUCT USED FOR UNKNOWN INDICATION
     Dosage: 1 DF, DAILY
     Route: 048
  8. XGEVA [Concomitant]
     Active Substance: DENOSUMAB
     Indication: PRODUCT USED FOR UNKNOWN INDICATION
     Dosage: 120 MG, UNK
     Route: 065

REACTIONS (15)
  - Dyspnoea [Fatal]
  - Pruritus [Fatal]
  - Steatohepatitis [Unknown]
  - Liver function test abnormal [Recovered/Resolved]
  - Renal impairment [Unknown]
  - Chromaturia [Fatal]
  - Fatigue [Fatal]
  - Hepatic failure [Fatal]
  - Mental status changes [Fatal]
  - Lethargy [Fatal]
  - Jaundice [Fatal]
  - Liver function test abnormal [Fatal]
  - Hepatic steatosis [Fatal]
  - Ascites [Fatal]
  - Pneumonitis [Unknown]

NARRATIVE: CASE EVENT DATE: 201412
